FAERS Safety Report 18464516 (Version 7)
Quarter: 2024Q2

REPORT INFORMATION
  Report Type: Spontaneous
  Country: US (occurrence: US)
  Receive Date: 20201104
  Receipt Date: 20240617
  Transmission Date: 20240716
  Serious: Yes (Other)
  Sender: FDA-Public Use
  Company Number: US-PFIZER INC-2020426394

PATIENT
  Age: 43 Year
  Sex: Male
  Weight: 83.2 kg

DRUGS (6)
  1. XYNTHA [Suspect]
     Active Substance: ANTIHEMOPHILIC FACTOR, HUMAN RECOMBINANT RESIDUES 743-1636 DELETED
     Indication: Haemarthrosis
     Dosage: 2000 IU 40-50 UNITS/KG =3320-4650 UNITS
     Route: 040
  2. XYNTHA [Suspect]
     Active Substance: ANTIHEMOPHILIC FACTOR, HUMAN RECOMBINANT RESIDUES 743-1636 DELETED
     Indication: Haemorrhage
     Dosage: 40-50 UNITS/KG (3320 TO 4650 UNITS PER DOSE) IV PUSH AT TIME OF BLEED
     Route: 042
  3. XYNTHA [Suspect]
     Active Substance: ANTIHEMOPHILIC FACTOR, HUMAN RECOMBINANT RESIDUES 743-1636 DELETED
     Indication: Joint injury
     Dosage: 250 IU
  4. XYNTHA [Suspect]
     Active Substance: ANTIHEMOPHILIC FACTOR, HUMAN RECOMBINANT RESIDUES 743-1636 DELETED
     Dosage: INFUSE XYNTHA 40-50 UNITS/KG = 3200 4000 UNITS IV SLOW PUSH X 1
     Route: 042
  5. XYNTHA [Suspect]
     Active Substance: ANTIHEMOPHILIC FACTOR, HUMAN RECOMBINANT RESIDUES 743-1636 DELETED
     Dosage: JOINT BLEEDS OR MAJOR BLEEDS: 40-50 UNITS/KG (3320 TO 4650 UNITS PER DOSE) IV P
     Route: 042
  6. XYNTHA [Suspect]
     Active Substance: ANTIHEMOPHILIC FACTOR, HUMAN RECOMBINANT RESIDUES 743-1636 DELETED
     Dosage: XYNTHA 49 U/KG (3856 UNITS), E-AMINOCAPROIC ACID Q6HOURS (EVERY 6 HOURS)
     Dates: start: 20190422

REACTIONS (8)
  - Haemorrhage [Unknown]
  - Dental operation [Unknown]
  - Lower limb fracture [Unknown]
  - Tibia fracture [Unknown]
  - Central venous catheterisation [Unknown]
  - Product prescribing error [Unknown]
  - Expired product administered [Unknown]
  - Tooth disorder [Unknown]

NARRATIVE: CASE EVENT DATE: 20210525
